FAERS Safety Report 5191269-7 (Version None)
Quarter: 2006Q4

REPORT INFORMATION
  Report Type: 
  Country: None (occurrence: None)
  Receive Date: 20061220
  Receipt Date: 20061220
  Transmission Date: 20070319
  Serious: Yes (Hospitalization)
  Sender: FDA-Public Use
  Company Number: None

PATIENT
  Age: 47 Year
  Sex: Female
  Weight: 73.0291 kg

DRUGS (4)
  1. ORTHO NOVUM 1/2 TAB [Suspect]
     Indication: UTERINE LEIOMYOMA
     Dosage: ONE PO DAILY RECENTLY
     Route: 048
  2. NAPROXEN [Concomitant]
  3. VALIUM [Concomitant]
  4. ORTHO-NOVUM [Concomitant]

REACTIONS (1)
  - PULMONARY EMBOLISM [None]
